FAERS Safety Report 8565956-4 (Version None)
Quarter: 2012Q3

REPORT INFORMATION
  Report Type: 
  Country: None (occurrence: None)
  Receive Date: 20120803
  Receipt Date: 20111007
  Transmission Date: 20120928
  Serious: No
  Sender: FDA-Public Use
  Company Number: US-ABBOTT-11P-163-0862265-00

PATIENT
  Sex: Female
  Weight: 77.634 kg

DRUGS (2)
  1. NIASPAN [Suspect]
     Indication: BLOOD CHOLESTEROL INCREASED
     Dates: start: 20111004
  2. UNKNOWN MEDICATION FOR HIATAL HERNIA [Concomitant]
     Indication: HIATUS HERNIA

REACTIONS (3)
  - FEELING HOT [None]
  - PRURITUS [None]
  - FLUSHING [None]
